FAERS Safety Report 21871118 (Version 7)
Quarter: 2023Q2

REPORT INFORMATION
  Report Type: Report from Study
  Country: CA (occurrence: CA)
  Receive Date: 20230117
  Receipt Date: 20230602
  Transmission Date: 20230722
  Serious: Yes (Other)
  Sender: FDA-Public Use
  Company Number: CA-BEH-2022151914

PATIENT
  Age: 72 Year
  Sex: Male
  Weight: 56 kg

DRUGS (25)
  1. HIZENTRA [Suspect]
     Active Substance: HUMAN IMMUNOGLOBULIN G
     Indication: Chronic inflammatory demyelinating polyradiculoneuropathy
     Dosage: 13 GRAM, QW
     Route: 065
     Dates: start: 20221104
  2. HIZENTRA [Suspect]
     Active Substance: HUMAN IMMUNOGLOBULIN G
     Dosage: UNK
     Route: 065
     Dates: start: 20221104
  3. HIZENTRA [Suspect]
     Active Substance: HUMAN IMMUNOGLOBULIN G
     Dosage: UNK
     Route: 065
     Dates: start: 20221104
  4. HIZENTRA [Suspect]
     Active Substance: HUMAN IMMUNOGLOBULIN G
     Dosage: UNK
     Route: 065
     Dates: start: 20221104
  5. HIZENTRA [Suspect]
     Active Substance: HUMAN IMMUNOGLOBULIN G
     Dosage: UNK
     Route: 065
     Dates: start: 20221104
  6. HIZENTRA [Suspect]
     Active Substance: HUMAN IMMUNOGLOBULIN G
     Dosage: UNK
     Route: 065
     Dates: start: 20221106
  7. HIZENTRA [Suspect]
     Active Substance: HUMAN IMMUNOGLOBULIN G
     Dosage: UNK
     Route: 065
     Dates: start: 20221104
  8. HIZENTRA [Suspect]
     Active Substance: HUMAN IMMUNOGLOBULIN G
     Dosage: UNK
     Route: 065
  9. HIZENTRA [Suspect]
     Active Substance: HUMAN IMMUNOGLOBULIN G
     Dosage: 13 GRAM (65 ML)
     Route: 065
     Dates: start: 20221108
  10. HIZENTRA [Suspect]
     Active Substance: HUMAN IMMUNOGLOBULIN G
     Dosage: UNK
     Route: 065
     Dates: start: 202211
  11. HIZENTRA [Suspect]
     Active Substance: HUMAN IMMUNOGLOBULIN G
     Dosage: 63 MILLILITER
     Route: 065
     Dates: start: 2022
  12. HIZENTRA [Suspect]
     Active Substance: HUMAN IMMUNOGLOBULIN G
     Dosage: UNK
     Route: 065
     Dates: start: 20221104
  13. HIZENTRA [Suspect]
     Active Substance: HUMAN IMMUNOGLOBULIN G
     Dosage: UNK
     Route: 065
     Dates: start: 20230209
  14. HIZENTRA [Suspect]
     Active Substance: HUMAN IMMUNOGLOBULIN G
     Dosage: UNK
     Route: 065
     Dates: start: 20230302
  15. HIZENTRA [Suspect]
     Active Substance: HUMAN IMMUNOGLOBULIN G
     Dosage: UNK
     Route: 065
     Dates: start: 20230309
  16. HIZENTRA [Suspect]
     Active Substance: HUMAN IMMUNOGLOBULIN G
     Dosage: UNK
     Route: 065
     Dates: start: 20230330
  17. HIZENTRA [Suspect]
     Active Substance: HUMAN IMMUNOGLOBULIN G
     Dosage: UNK
     Route: 065
     Dates: start: 20221104
  18. PROLINE [Suspect]
     Active Substance: PROLINE
     Indication: Product used for unknown indication
     Route: 050
  19. LEVODOPA [Concomitant]
     Active Substance: LEVODOPA
  20. GABAPENTIN [Concomitant]
     Active Substance: GABAPENTIN
  21. IRON [Concomitant]
     Active Substance: IRON
  22. VITAMIN B12 [Concomitant]
     Active Substance: CYANOCOBALAMIN
  23. CALCIUM [Concomitant]
     Active Substance: CALCIUM
  24. DULOXETINE [Concomitant]
     Active Substance: DULOXETINE
  25. HUMAN IMMUNOGLOBULIN G [Concomitant]
     Active Substance: HUMAN IMMUNOGLOBULIN G
     Route: 042

REACTIONS (27)
  - Injection site pain [Recovered/Resolved]
  - No adverse event [Unknown]
  - Incorrect dose administered [Unknown]
  - No adverse event [Unknown]
  - Inappropriate schedule of product administration [Unknown]
  - No adverse event [Recovered/Resolved]
  - Incorrect drug administration rate [Recovered/Resolved]
  - Blood urine present [Recovered/Resolved]
  - Blood urine present [Recovered/Resolved]
  - No adverse event [Unknown]
  - Wrong technique in product usage process [Unknown]
  - Incorrect dose administered [Unknown]
  - No adverse event [Unknown]
  - Product use complaint [Unknown]
  - Wrong technique in product usage process [Unknown]
  - Incorrect dose administered [Unknown]
  - Heart rate irregular [Unknown]
  - Dyspnoea [Unknown]
  - Renal impairment [Unknown]
  - Glomerular filtration rate decreased [Unknown]
  - Blood creatinine increased [Unknown]
  - Rash [Recovered/Resolved]
  - Rash pruritic [Recovered/Resolved]
  - No adverse event [Unknown]
  - Wrong technique in product usage process [Unknown]
  - Incorrect dose administered [Unknown]
  - Blood urine present [Unknown]

NARRATIVE: CASE EVENT DATE: 20221101
